FAERS Safety Report 9842212 (Version 1)
Quarter: 2014Q1

REPORT INFORMATION
  Report Type: Spontaneous
  Country: US (occurrence: US)
  Receive Date: 20140124
  Receipt Date: 20140124
  Transmission Date: 20141002
  Serious: Yes (Death)
  Sender: FDA-Public Use
  Company Number: US-GLAXOSMITHKLINE-A1057756A

PATIENT
  Age: 94 Year
  Sex: Female

DRUGS (1)
  1. TYKERB [Suspect]
     Indication: BREAST CANCER STAGE IV
     Route: 065
     Dates: start: 20130703

REACTIONS (3)
  - Death [Fatal]
  - Adverse drug reaction [Unknown]
  - Disease progression [Unknown]
